FAERS Safety Report 8477338-4 (Version None)
Quarter: 2012Q2

REPORT INFORMATION
  Report Type: 
  Country: None (occurrence: None)
  Receive Date: 20120622
  Receipt Date: 20120611
  Transmission Date: 20120825
  Serious: Yes (Hospitalization)
  Sender: FDA-Public Use
  Company Number: ACO_30705_2012

PATIENT
  Age: 41 Year
  Sex: Female
  Weight: 135.6 kg

DRUGS (6)
  1. COPAXONE [Concomitant]
  2. OXYBUTYNIN [Concomitant]
  3. PROVIGIL [Concomitant]
  4. GABAPENTIN [Concomitant]
  5. AMPYRA [Suspect]
     Indication: GAIT DISTURBANCE
     Dosage: 10 MG, BID, ORAL
     Route: 048
     Dates: start: 20110501, end: 20120606
  6. ZOLPIDEM [Concomitant]

REACTIONS (6)
  - PAIN IN EXTREMITY [None]
  - GAIT DISTURBANCE [None]
  - THROMBOSIS [None]
  - ECONOMIC PROBLEM [None]
  - PULMONARY EMBOLISM [None]
  - ARTHRALGIA [None]
